FAERS Safety Report 6569097-7 (Version None)
Quarter: 2010Q1

REPORT INFORMATION
  Report Type: 
  Country: None (occurrence: None)
  Receive Date: 20100203
  Receipt Date: 20100125
  Transmission Date: 20100710
  Serious: Yes (Other)
  Sender: FDA-Public Use
  Company Number: US-JNJCH-2010002707

PATIENT
  Age: 6 Year
  Sex: Male
  Weight: 23.6 kg

DRUGS (1)
  1. LISTERINE SMART RINSE MINT SHIELD [Suspect]
     Indication: DENTAL DISORDER PROPHYLAXIS
     Dosage: TEXT:10 MILLILITER ONCE DAILY
     Route: 048

REACTIONS (4)
  - ERYTHEMA [None]
  - INAPPROPRIATE SCHEDULE OF DRUG ADMINISTRATION [None]
  - LIP SWELLING [None]
  - NASAL OEDEMA [None]
